FAERS Safety Report 4814052-8 (Version None)
Quarter: 2005Q4

REPORT INFORMATION
  Report Type: 
  Country: None (occurrence: None)
  Receive Date: 20051028
  Receipt Date: 20050715
  Transmission Date: 20060501
  Serious: No
  Sender: FDA-Public Use
  Company Number: US-GLAXOSMITHKLINE-A0566460A

PATIENT
  Sex: Female

DRUGS (9)
  1. SEREVENT [Suspect]
     Indication: ASTHMA
     Dosage: 1PUFF TWICE PER DAY
     Route: 055
     Dates: start: 20011008
  2. PREVACID [Concomitant]
  3. DIAZEPAM [Concomitant]
  4. BENAZAPRIL [Concomitant]
  5. VYTORIN [Concomitant]
  6. NORVASC [Concomitant]
  7. LIPITOR [Concomitant]
  8. FUROSEMIDE [Concomitant]
  9. PREDNISONE [Concomitant]

REACTIONS (2)
  - DRUG INEFFECTIVE [None]
  - PHARMACEUTICAL PRODUCT COMPLAINT [None]
